FAERS Safety Report 23637592 (Version 5)
Quarter: 2024Q2

REPORT INFORMATION
  Report Type: Spontaneous
  Country: CO (occurrence: CO)
  Receive Date: 20240315
  Receipt Date: 20240424
  Transmission Date: 20240716
  Serious: Yes (Hospitalization, Other)
  Sender: FDA-Public Use
  Company Number: CO-PFIZER INC-PV202400031580

PATIENT
  Age: 9 Year
  Sex: Male

DRUGS (1)
  1. GENOTROPIN [Suspect]
     Active Substance: SOMATROPIN
     Indication: Short stature
     Dosage: 0.8 MG, DAILY
     Route: 030
     Dates: start: 20240217, end: 20240304

REACTIONS (4)
  - Toxicity to various agents [Recovered/Resolved]
  - Incorrect dose administered by device [Recovered/Resolved]
  - Device delivery system issue [Recovered/Resolved]
  - Device mechanical issue [Recovered/Resolved]

NARRATIVE: CASE EVENT DATE: 20240304
